FAERS Safety Report 5339357-6 (Version None)
Quarter: 2007Q2

REPORT INFORMATION
  Report Type: 
  Country: None (occurrence: None)
  Receive Date: 20070322
  Receipt Date: 20070213
  Transmission Date: 20071010
  Serious: Yes (Other)
  Sender: FDA-Public Use
  Company Number: 200710017BCC

PATIENT
  Age: 28 Year
  Sex: Male
  Weight: 74.8435 kg

DRUGS (1)
  1. ALEVE (CAPLET) [Suspect]
     Indication: NASOPHARYNGITIS
     Dosage: 440 MG, TOTAL DAILY, ORAL
     Route: 048
     Dates: start: 20070101

REACTIONS (4)
  - DYSPNOEA [None]
  - HYPERSENSITIVITY [None]
  - SWELLING FACE [None]
  - URTICARIA [None]
